FAERS Safety Report 17466480 (Version 1)
Quarter: 2020Q1

REPORT INFORMATION
  Report Type: Report from Study
  Country: US (occurrence: US)
  Receive Date: 20200227
  Receipt Date: 20200227
  Transmission Date: 20200409
  Serious: Yes (Other)
  Sender: FDA-Public Use
  Company Number: US-ROCHE-2552264

PATIENT
  Sex: Male

DRUGS (1)
  1. OCREVUS [Suspect]
     Active Substance: OCRELIZUMAB
     Indication: PRIMARY PROGRESSIVE MULTIPLE SCLEROSIS
     Dosage: DATE OF TREATMENT: 30/JAN/2018, 24/JUL/2018, 31/JAN/2019, 31/JUL/2019 AND 03/FEB/2020
     Route: 065
     Dates: start: 20180117

REACTIONS (2)
  - Pneumonia [Recovered/Resolved]
  - Myalgia [Not Recovered/Not Resolved]
